FAERS Safety Report 23285953 (Version 2)
Quarter: 2023Q4

REPORT INFORMATION
  Report Type: Spontaneous
  Country: DE (occurrence: DE)
  Receive Date: 20231212
  Receipt Date: 20231228
  Transmission Date: 20240110
  Serious: Yes (Other)
  Sender: FDA-Public Use
  Company Number: DE-PROCTER+GAMBLE-PH23010125

PATIENT
  Age: 60 Year
  Sex: Female
  Weight: 100 kg

DRUGS (6)
  1. RISPERDAL [Suspect]
     Active Substance: RISPERIDONE
     Indication: Suicidal ideation
     Dosage: GENERALLY 1-0-2 TABLETS/ 20-25 TABLET/S (MAINTENANCE MEDICATION), 1 ONLY
     Route: 048
     Dates: start: 20231105, end: 20231105
  2. CHOLECALCIFEROL [Suspect]
     Active Substance: CHOLECALCIFEROL
     Indication: Product used for unknown indication
     Dosage: UNKNOWN QUANTITY OF DROPS (THERAPEUTIC DOSE), ORAL, LIKELY EXPOSURE, 1 ONLY
     Route: 048
     Dates: start: 20231105, end: 20231105
  3. HERBALS\PLANTAGO OVATA LEAF [Suspect]
     Active Substance: HERBALS\PLANTAGO OVATA LEAF
     Indication: Product used for unknown indication
     Dosage: UNKNOWN AMOUNT SACHET (THERAPEUTIC DOSE), ORAL, LIKELY EXPOSURE, 1 ONLY
     Route: 048
     Dates: start: 20231105, end: 20231105
  4. TAVOR (LORAZEPAM) [Suspect]
     Active Substance: LORAZEPAM
     Indication: Product used for unknown indication
     Dosage: UNKNOWN QUANTITY OF TABLET(S) (THERAPEUTIC DOSE), ORAL, LIKELY EXPOSURE, 1 ONLY
     Route: 048
     Dates: start: 20231105, end: 20231105
  5. SERTRALINE [Suspect]
     Active Substance: SERTRALINE HYDROCHLORIDE
     Indication: Product used for unknown indication
     Dosage: 1 TABLET (MAINTENANCE MEDICATION), ORAL, LIKELY EXPOSURE
     Route: 048
     Dates: start: 20231105, end: 20231105
  6. LEVOTHYROXINE SODIUM [Suspect]
     Active Substance: LEVOTHYROXINE SODIUM
     Dosage: UNKNOWN QUANTITY OF TABLET(S) (THERAPEUTIC DOSE), ORAL, LIKELY EXPOSURE, 1 ONLY
     Route: 048
     Dates: start: 20231105, end: 20231105

REACTIONS (3)
  - Oxygen saturation decreased [Unknown]
  - Suicide attempt [Unknown]
  - Hypotension [Unknown]

NARRATIVE: CASE EVENT DATE: 20231105
